FAERS Safety Report 9430814 (Version 1)
Quarter: 2013Q3

REPORT INFORMATION
  Report Type: Report from Study
  Country: US (occurrence: US)
  Receive Date: 20130730
  Receipt Date: 20130730
  Transmission Date: 20140515
  Serious: No
  Sender: FDA-Public Use
  Company Number: US-ABBOTT-13P-163-1094090-00

PATIENT
  Sex: Male
  Weight: 90.8 kg

DRUGS (5)
  1. NIASPAN [Suspect]
     Indication: BLOOD DISORDER
     Dosage: 1500MG WITH DINNER
  2. ASPIRIN [Concomitant]
     Indication: PRODUCT USED FOR UNKNOWN INDICATION
     Dosage: TAKES SAME TIME WITH NIASPAN
  3. SIMVASTATIN [Concomitant]
     Indication: PRODUCT USED FOR UNKNOWN INDICATION
  4. CALCIUM [Concomitant]
     Indication: PRODUCT USED FOR UNKNOWN INDICATION
  5. ATENOLOL [Concomitant]
     Indication: PRODUCT USED FOR UNKNOWN INDICATION

REACTIONS (3)
  - Blood pressure abnormal [Recovered/Resolved]
  - Flushing [Not Recovered/Not Resolved]
  - Burning sensation [Not Recovered/Not Resolved]
